FAERS Safety Report 10917825 (Version 1)
Quarter: 2015Q1

REPORT INFORMATION
  Report Type: Spontaneous
  Country: IT (occurrence: IT)
  Receive Date: 20150316
  Receipt Date: 20150316
  Transmission Date: 20150721
  Serious: Yes (Other)
  Sender: FDA-Public Use
  Company Number: IT-GLAXOSMITHKLINE-IT2015GSK032334

PATIENT
  Sex: Male

DRUGS (3)
  1. AVAMYS [Suspect]
     Active Substance: FLUTICASONE FUROATE
     Indication: RHINITIS
     Dosage: 27.5 UNK, U
     Route: 006
     Dates: start: 20150214, end: 20150225
  2. DELTACORTENE [Suspect]
     Active Substance: PREDNISONE
     Indication: RHINITIS
     Dosage: UNK
     Route: 048
     Dates: start: 20150214, end: 20150223
  3. LIMPIDEX [Suspect]
     Active Substance: LANSOPRAZOLE
     Indication: RHINITIS
     Dosage: 30 MG, U
     Route: 048
     Dates: start: 20150214, end: 20150223

REACTIONS (3)
  - Urticaria [Unknown]
  - Rash generalised [Unknown]
  - Angioedema [Unknown]
